FAERS Safety Report 7866098-3 (Version None)
Quarter: 2011Q4

REPORT INFORMATION
  Report Type: 
  Country: None (occurrence: None)
  Receive Date: 20111028
  Receipt Date: 20110422
  Transmission Date: 20120403
  Serious: Yes (Other)
  Sender: FDA-Public Use
  Company Number: US-GLAXOSMITHKLINE-A0924223A

PATIENT
  Age: 67 Year
  Sex: Female

DRUGS (11)
  1. THEOPHYLLINE [Concomitant]
  2. LUMIGAN [Concomitant]
  3. ASPIRIN [Concomitant]
  4. OXYBUTYNIN [Concomitant]
  5. ALPHAGAN [Concomitant]
  6. ADVAIR DISKUS 100/50 [Suspect]
     Indication: CHRONIC OBSTRUCTIVE PULMONARY DISEASE
     Dosage: 1PUFF TWICE PER DAY
     Route: 055
     Dates: start: 20060101
  7. SPIRIVA [Concomitant]
  8. BETOPTIC [Concomitant]
  9. HYDROCHLOROTHIAZIDE [Concomitant]
  10. AZOPT [Concomitant]
  11. PROVENTIL [Concomitant]

REACTIONS (2)
  - PNEUMONIA [None]
  - COUGH [None]
